FAERS Safety Report 15582894 (Version 3)
Quarter: 2019Q2

REPORT INFORMATION
  Report Type: Report from Study
  Country: US (occurrence: US)
  Receive Date: 20181105
  Receipt Date: 20190415
  Transmission Date: 20190711
  Serious: Yes (Hospitalization)
  Sender: FDA-Public Use
  Company Number: US-ROCHE-2206850

PATIENT
  Age: 54 Year
  Sex: Female
  Weight: 89.44 kg

DRUGS (1)
  1. OCREVUS [Suspect]
     Active Substance: OCRELIZUMAB
     Indication: RELAPSING MULTIPLE SCLEROSIS
     Dosage: JUL/2018 OR AUG/2018
     Route: 065
     Dates: start: 2018

REACTIONS (3)
  - Pneumonia [Not Recovered/Not Resolved]
  - Pulmonary thrombosis [Unknown]
  - Dyspnoea [Unknown]

NARRATIVE: CASE EVENT DATE: 20181018
